FAERS Safety Report 18472542 (Version 1)
Quarter: 2020Q4

REPORT INFORMATION
  Report Type: Spontaneous
  Country: US (occurrence: US)
  Receive Date: 20201105
  Receipt Date: 20201105
  Transmission Date: 20210114
  Serious: Yes (Death)
  Sender: FDA-Public Use
  Company Number: None

PATIENT
  Age: 76 Year
  Sex: Male
  Weight: 84.82 kg

DRUGS (2)
  1. REMDESIVIR. [Suspect]
     Active Substance: REMDESIVIR
  2. N/A [Concomitant]
     Active Substance: UNSPECIFIED INGREDIENT

REACTIONS (11)
  - Hypoxia [None]
  - Ecchymosis [None]
  - Pneumonia [None]
  - Ileus [None]
  - Delirium [None]
  - Nausea [None]
  - Anaemia [None]
  - Tachypnoea [None]
  - Confusional state [None]
  - Livedo reticularis [None]
  - Blood loss anaemia [None]
